FAERS Safety Report 13500034 (Version 8)
Quarter: 2019Q3

REPORT INFORMATION
  Report Type: Report from Study
  Country: IT (occurrence: IT)
  Receive Date: 20170501
  Receipt Date: 20190922
  Transmission Date: 20191004
  Serious: Yes (Death, Hospitalization, Other)
  Sender: FDA-Public Use
  Company Number: IT-CELGENEUS-ITA-20170310898

PATIENT
  Age: 51 Year
  Sex: Male
  Weight: 76 kg

DRUGS (7)
  1. MORPHINE [Concomitant]
     Active Substance: MORPHINE
     Indication: PAIN IN EXTREMITY
     Route: 065
  2. AMIODARONE [Concomitant]
     Active Substance: AMIODARONE
     Indication: ATRIAL FIBRILLATION
     Route: 065
  3. SPORANOX [Concomitant]
     Active Substance: ITRACONAZOLE
     Indication: PRODUCT USED FOR UNKNOWN INDICATION
     Route: 065
  4. AZACITIDINE. [Suspect]
     Active Substance: AZACITIDINE
     Indication: ACUTE MYELOID LEUKAEMIA
     Dosage: 75 MILLIGRAM/SQ. METER
     Route: 058
     Dates: start: 20170109, end: 20170314
  5. LANSOPRAZOLE. [Concomitant]
     Active Substance: LANSOPRAZOLE
     Indication: PRODUCT USED FOR UNKNOWN INDICATION
     Route: 065
  6. PARACETAMOL [Concomitant]
     Active Substance: ACETAMINOPHEN
     Indication: PRODUCT USED FOR UNKNOWN INDICATION
     Route: 065
  7. MLN4924 (PEVONEDISTAT) [Suspect]
     Active Substance: PEVONEDISTAT
     Indication: ACUTE MYELOID LEUKAEMIA
     Dosage: 20 MILLIGRAM/SQ. METER
     Route: 050
     Dates: start: 20170109, end: 20170310

REACTIONS (5)
  - Sepsis [Fatal]
  - Febrile neutropenia [Recovered/Resolved]
  - Oral viral infection [Recovered/Resolved]
  - Diarrhoea [Recovered/Resolved]
  - Proctitis [Recovered/Resolved]

NARRATIVE: CASE EVENT DATE: 20170318
